FAERS Safety Report 23526906 (Version 3)
Quarter: 2024Q1

REPORT INFORMATION
  Report Type: Spontaneous
  Country: GB (occurrence: GB)
  Receive Date: 20240215
  Receipt Date: 20240224
  Transmission Date: 20240410
  Serious: Yes (Other)
  Sender: FDA-Public Use
  Company Number: GB-BAYER-2024A000195

PATIENT
  Age: 82 Year
  Sex: Female

DRUGS (3)
  1. EYLEA [Suspect]
     Active Substance: AFLIBERCEPT
     Indication: Neovascular age-related macular degeneration
     Dosage: UNK, TOTAL 16 DOSES, SOLUTION FOR INJECTION IN PRE-FILLED SYRINGE, 40 MG/ML
  2. EYLEA [Suspect]
     Active Substance: AFLIBERCEPT
     Dosage: 2 MG, LEFT EYE, SOLUTION FOR INJECTION IN PRE-FILLED SYRINGE, 40 MG/ML
     Route: 031
     Dates: start: 20231027, end: 20231027
  3. UNSPECIFIED INGREDIENT [Concomitant]
     Active Substance: UNSPECIFIED INGREDIENT
     Indication: Neovascular age-related macular degeneration
     Dosage: UNK
     Dates: start: 20220812

REACTIONS (1)
  - Intra-ocular injection complication [Unknown]

NARRATIVE: CASE EVENT DATE: 20231222
